FAERS Safety Report 11852587 (Version 1)
Quarter: 2015Q4

REPORT INFORMATION
  Report Type: Spontaneous
  Country: US (occurrence: US)
  Receive Date: 20151218
  Receipt Date: 20151218
  Transmission Date: 20160305
  Serious: No
  Sender: FDA-Public Use
  Company Number: US-BAYER-2015-492333

PATIENT
  Age: 74 Year
  Sex: Female
  Weight: 108.84 kg

DRUGS (2)
  1. CLARITIN [Suspect]
     Active Substance: LORATADINE
     Indication: SINUS DISORDER
     Dosage: 2 DF, UNK
     Route: 048
     Dates: start: 20151217, end: 20151217
  2. CLARITIN [Suspect]
     Active Substance: LORATADINE
     Indication: SEASONAL ALLERGY
     Dosage: 1 DF, QD
     Route: 048
     Dates: start: 20151217

REACTIONS (1)
  - Product use issue [None]

NARRATIVE: CASE EVENT DATE: 20151217
